FAERS Safety Report 5706578-X (Version None)
Quarter: 2008Q2

REPORT INFORMATION
  Report Type: 
  Country: None (occurrence: None)
  Receive Date: 20080414
  Receipt Date: 20080404
  Transmission Date: 20081010
  Serious: Yes (Death, Other)
  Sender: FDA-Public Use
  Company Number: 093-20785-08040519

PATIENT
  Age: 66 Year
  Sex: Male

DRUGS (2)
  1. THALIDOMIDE [Suspect]
     Indication: MULTIPLE MYELOMA
     Dosage: 100 MG, DAILY, ORAL
     Route: 048
     Dates: start: 20071001, end: 20080201
  2. ZOLEDRONIC ACID                (ZOLDRONIC ACID) [Concomitant]

REACTIONS (3)
  - COMA URAEMIC [None]
  - DISEASE PROGRESSION [None]
  - RENAL FAILURE [None]
